FAERS Safety Report 4970477-1 (Version None)
Quarter: 2006Q2

REPORT INFORMATION
  Report Type: 
  Country: None (occurrence: None)
  Receive Date: 20060411
  Receipt Date: 20060411
  Transmission Date: 20061013
  Serious: Yes (Life-Threatening, Hospitalization, Disabling)
  Sender: FDA-Public Use
  Company Number: None

PATIENT
  Age: 37 Year
  Sex: Male
  Weight: 95.709 kg

DRUGS (1)
  1. VANCOMYCIN [Suspect]
     Indication: STEVENS-JOHNSON SYNDROME
     Dosage: ONCE
     Dates: start: 20040721, end: 20040721

REACTIONS (2)
  - POST PROCEDURAL COMPLICATION [None]
  - STEVENS-JOHNSON SYNDROME [None]
